FAERS Safety Report 5356438-1 (Version None)
Quarter: 2007Q2

REPORT INFORMATION
  Report Type: 
  Country: None (occurrence: None)
  Receive Date: 20070612
  Receipt Date: 20070606
  Transmission Date: 20071010
  Serious: Yes (Death, Hospitalization, Disabling)
  Sender: FDA-Public Use
  Company Number: WAES 0611USA04018

PATIENT
  Age: 38 Year
  Sex: Male

DRUGS (2)
  1. TAB SITAGLIPTIN PHOSPHATE [Suspect]
     Indication: DIABETES MELLITUS NON-INSULIN-DEPENDENT
     Dosage: 100 MG/DAILY
     Route: 048
     Dates: start: 20060928, end: 20061031
  2. THERAPY UNSPECIFIED [Concomitant]

REACTIONS (7)
  - BLOOD POTASSIUM DECREASED [None]
  - BLOOD UREA INCREASED [None]
  - CEREBRAL INFARCTION [None]
  - CEREBROVASCULAR ACCIDENT [None]
  - HAEMOGLOBIN DECREASED [None]
  - HEMIPLEGIA [None]
  - PNEUMONIA ASPIRATION [None]
